FAERS Safety Report 10241433 (Version 1)
Quarter: 2014Q2

REPORT INFORMATION
  Report Type: Spontaneous
  Country: US (occurrence: US)
  Receive Date: 20140617
  Receipt Date: 20140617
  Transmission Date: 20141212
  Serious: Yes (Hospitalization, Other)
  Sender: FDA-Public Use
  Company Number: US-BAYER-2014-089596

PATIENT
  Age: 41 Year
  Sex: Female

DRUGS (9)
  1. YAZ [Suspect]
     Indication: MENSTRUAL CYCLE MANAGEMENT
  2. TAMIFLU [Concomitant]
     Dosage: 75 MG, UNK
     Route: 048
     Dates: start: 20080319
  3. HYDROCODONE/ACETAMINOPHEN [Concomitant]
     Indication: PAIN IN EXTREMITY
     Dosage: 10-500 MG
     Route: 048
     Dates: start: 20080517
  4. ZOLOFT [Concomitant]
     Dosage: 50 MG, UNK
  5. UNIRETIC [Concomitant]
  6. METOPROLOL [Concomitant]
  7. TOPROL XL [Concomitant]
  8. LORTAB [Concomitant]
     Indication: PAIN IN EXTREMITY
  9. NEXIUM [Concomitant]

REACTIONS (3)
  - Deep vein thrombosis [Recovered/Resolved]
  - Pulmonary embolism [None]
  - Cholecystectomy [None]
